FAERS Safety Report 22113985 (Version 1)
Quarter: 2023Q1

REPORT INFORMATION
  Report Type: Report from Study
  Country: CA (occurrence: CA)
  Receive Date: 20230320
  Receipt Date: 20230320
  Transmission Date: 20230417
  Serious: Yes (Hospitalization)
  Sender: FDA-Public Use
  Company Number: CA-TAKEDA-2021TUS078122

PATIENT
  Age: 63 Year
  Sex: Male

DRUGS (3)
  1. HUMAN IMMUNOGLOBULIN G [Suspect]
     Active Substance: HUMAN IMMUNOGLOBULIN G
     Indication: Secondary immunodeficiency
     Dosage: 26 GRAM, 1/WEEK
     Route: 065
     Dates: start: 20210920
  2. HUMAN IMMUNOGLOBULIN G [Suspect]
     Active Substance: HUMAN IMMUNOGLOBULIN G
     Indication: Chronic inflammatory demyelinating polyradiculoneuropathy
     Dosage: 18 GRAM, 1/WEEK
     Route: 058
     Dates: start: 20210920
  3. HUMAN IMMUNOGLOBULIN G [Suspect]
     Active Substance: HUMAN IMMUNOGLOBULIN G
     Indication: Carpal tunnel syndrome
     Dosage: 20 GRAM, 1/WEEK
     Route: 050
     Dates: start: 20210920

REACTIONS (5)
  - Shoulder arthroplasty [Unknown]
  - Neuralgia [Unknown]
  - Nerve compression [Unknown]
  - Drug ineffective [Unknown]
  - Off label use [Unknown]
